FAERS Safety Report 24763542 (Version 1)
Quarter: 2024Q4

REPORT INFORMATION
  Report Type: Other
  Country: CA (occurrence: CA)
  Receive Date: 20241223
  Receipt Date: 20241223
  Transmission Date: 20250115
  Serious: Yes (Hospitalization)
  Sender: AVEVA DRUG DELIVERY SYSTEMS INC.
  Company Number: None

PATIENT
  Age: 7 Decade
  Sex: Male

DRUGS (10)
  1. FENTANYL [Suspect]
     Active Substance: FENTANYL
     Indication: Product used for unknown indication
     Dosage: UNK
     Route: 065
  2. METHYLENE BLUE [Suspect]
     Active Substance: METHYLENE BLUE
     Indication: Vasoplegia syndrome
     Dosage: 1.0 MILLIGRAM PER KILOGRAM
     Route: 065
  3. EPINEPHRINE HYDROCHLORIDE [Concomitant]
     Active Substance: EPINEPHRINE HYDROCHLORIDE
     Indication: Vasoplegia syndrome
     Dosage: 0.05 UG/KG (MICROGRAM PER KILOGRAM)
     Route: 065
  4. NOREPINEPHRINE BITARTRATE [Concomitant]
     Active Substance: NOREPINEPHRINE BITARTRATE
     Indication: Vasoplegia syndrome
     Dosage: 0.3 UG/KG (MICROGRAM PER KILOGRAM)
     Route: 065
  5. VASOPRESSIN [Concomitant]
     Active Substance: VASOPRESSIN
     Indication: Vasoplegia syndrome
     Dosage: UNK
     Route: 065
  6. METHYLENE BLUE [Suspect]
     Active Substance: METHYLENE BLUE
     Indication: Vasoplegia syndrome
     Dosage: 1.0 MILLIGRAM PER KILOGRAM
     Route: 065
  7. METHYLENE BLUE [Suspect]
     Active Substance: METHYLENE BLUE
     Indication: Vasoplegia syndrome
     Dosage: 1.0 MILLIGRAM PER KILOGRAM
     Route: 065
  8. METHYLENE BLUE [Suspect]
     Active Substance: METHYLENE BLUE
     Indication: Vasoplegia syndrome
     Dosage: 1.5 MILLIGRAM PER KILOGRAM
     Route: 065
  9. METHYLENE BLUE [Suspect]
     Active Substance: METHYLENE BLUE
     Indication: Vasoplegia syndrome
     Dosage: 1.0 MILLIGRAM PER KILOGRAM
     Route: 065
  10. METHYLENE BLUE [Suspect]
     Active Substance: METHYLENE BLUE
     Indication: Vasoplegia syndrome
     Dosage: 0.6 MILLIGRAM PER KILOGRAM
     Route: 065

REACTIONS (4)
  - Anticholinergic syndrome [Recovered/Resolved]
  - Drug interaction [Recovered/Resolved]
  - Multiple organ dysfunction syndrome [Recovered/Resolved]
  - Toxicity to various agents [Recovered/Resolved]
